FAERS Safety Report 9377740 (Version 1)
Quarter: 2013Q3

REPORT INFORMATION
  Report Type: Spontaneous
  Country: CH (occurrence: CH)
  Receive Date: 20130701
  Receipt Date: 20130701
  Transmission Date: 20140515
  Serious: Yes (Hospitalization, Other)
  Sender: FDA-Public Use
  Company Number: CH-PFIZER INC-2013189718

PATIENT
  Age: 67 Year
  Sex: Female

DRUGS (9)
  1. SORTIS [Suspect]
     Indication: HYPERCHOLESTEROLAEMIA
     Dosage: 40 MG, DAILY
     Route: 048
     Dates: start: 20130129, end: 20130419
  2. AUGMENTIN [Concomitant]
     Indication: PROPHYLACTIC CHEMOTHERAPY
     Dosage: UNK
     Route: 048
     Dates: start: 20130417, end: 20130418
  3. TAZOBAC [Concomitant]
     Indication: PNEUMONIA BACTERIAL
     Dosage: UNK
     Route: 040
     Dates: start: 20130420, end: 20130430
  4. CIPROXIN [Concomitant]
     Indication: PNEUMONIA BACTERIAL
     Dosage: UNK
     Route: 048
     Dates: start: 20130421, end: 20130430
  5. MERONEM [Concomitant]
     Indication: PNEUMONIA BACTERIAL
     Dosage: UNK
     Route: 040
     Dates: start: 20130430, end: 20130506
  6. VANCOCIN [Concomitant]
     Indication: PNEUMONIA BACTERIAL
     Dosage: UNK
     Dates: start: 20130430, end: 20130502
  7. ROCEPHIN [Concomitant]
     Indication: PNEUMONIA BACTERIAL
     Dosage: UNK
     Route: 040
     Dates: start: 20130506
  8. FLAGYL ^AVENTIS^ [Concomitant]
     Dosage: UNK
     Route: 048
     Dates: start: 20130506
  9. DIFLUCAN [Concomitant]
     Indication: PNEUMONIA
     Dosage: UNK
     Route: 048
     Dates: start: 20130507

REACTIONS (5)
  - Rhabdomyolysis [Recovering/Resolving]
  - Renal cortical necrosis [Unknown]
  - Pneumonia [Unknown]
  - Sepsis [Unknown]
  - Transaminases increased [Unknown]
